FAERS Safety Report 8452488 (Version 4)
Quarter: 2013Q1

REPORT INFORMATION
  Report Type: Other
  Country: US (occurrence: US)
  Receive Date: 20120312
  Receipt Date: 20130102
  Transmission Date: 20140127
  Serious: Yes (Other)
  Sender: FDA-Public Use
  Company Number: US-SHIRE-ALL1-2012-01298

PATIENT
  Age: 5 None
  Sex: Male

DRUGS (1)
  1. ELAPRASE [Suspect]
     Indication: MUCOPOLYSACCHARIDOSIS II
     Dosage: 12 MG, 1X/WEEK (2 VIALS, IV WEEKLY)
     Route: 041
     Dates: start: 20100202

REACTIONS (9)
  - Aortic dilatation [Recovering/Resolving]
  - Extrasystoles [Unknown]
  - Ear haemorrhage [Unknown]
  - Total lung capacity decreased [Not Recovered/Not Resolved]
  - Deafness [Not Recovered/Not Resolved]
  - Condition aggravated [Not Recovered/Not Resolved]
  - Dental caries [Recovering/Resolving]
  - Fatigue [Unknown]
  - Affect lability [Unknown]
